FAERS Safety Report 8391022-7 (Version None)
Quarter: 2012Q2

REPORT INFORMATION
  Report Type: 
  Country: None (occurrence: None)
  Receive Date: 20120529
  Receipt Date: 20120518
  Transmission Date: 20120825
  Serious: Yes (Death, Hospitalization)
  Sender: FDA-Public Use
  Company Number: JP-JNJFOC-20040104293

PATIENT
  Sex: Female
  Weight: 44 kg

DRUGS (19)
  1. RHEUMATREX [Suspect]
     Route: 048
     Dates: start: 20030523, end: 20030917
  2. RHEUMATREX [Suspect]
     Indication: RHEUMATOID ARTHRITIS
     Route: 048
     Dates: start: 20010725, end: 20021110
  3. RHEUMATREX [Suspect]
     Route: 048
     Dates: start: 20021110, end: 20030522
  4. INDOMETHACIN [Suspect]
     Indication: RHEUMATOID ARTHRITIS
     Route: 048
     Dates: start: 20000426
  5. PREDNISOLONE [Concomitant]
     Indication: RHEUMATOID ARTHRITIS
     Route: 048
     Dates: start: 19990801, end: 20031117
  6. ISONIAZID [Concomitant]
     Indication: ANTIBIOTIC PROPHYLAXIS
     Route: 048
     Dates: start: 20031222
  7. REMICADE [Suspect]
     Indication: RHEUMATOID ARTHRITIS
     Dosage: 3MG/KG
     Route: 041
     Dates: start: 20031016, end: 20031016
  8. AZULFIDINE [Concomitant]
     Indication: RHEUMATOID ARTHRITIS
     Route: 048
  9. RHEUMATREX [Suspect]
     Route: 048
     Dates: start: 20000426, end: 20010724
  10. ERISPAN [Concomitant]
     Route: 048
  11. REMICADE [Suspect]
     Dosage: 3MG/KG
     Route: 041
     Dates: start: 20040108, end: 20040108
  12. PREDNISOLONE [Concomitant]
     Route: 048
     Dates: start: 20031117, end: 20040123
  13. FOLIAMIN [Concomitant]
     Indication: PROPHYLAXIS
     Route: 048
     Dates: start: 20030918, end: 20040119
  14. REMICADE [Suspect]
     Dosage: 3MG/KG
     Route: 041
     Dates: start: 20031002, end: 20031002
  15. MUCOSTA [Concomitant]
     Route: 048
  16. HALCION [Concomitant]
     Route: 048
  17. REMICADE [Suspect]
     Dosage: 3MG/KG
     Route: 041
     Dates: start: 20031115, end: 20031115
  18. RHEUMATREX [Suspect]
     Route: 048
     Dates: start: 20030918, end: 20040119
  19. LANSOPRAZOLE [Concomitant]
     Route: 048
     Dates: start: 20020807

REACTIONS (1)
  - INTERSTITIAL LUNG DISEASE [None]
